FAERS Safety Report 4746879-5 (Version None)
Quarter: 2005Q3

REPORT INFORMATION
  Report Type: 
  Country: None (occurrence: None)
  Receive Date: 20050817
  Receipt Date: 20050802
  Transmission Date: 20060218
  Serious: Yes (Other)
  Sender: FDA-Public Use
  Company Number: NLWYE879403AUG05

PATIENT
  Sex: Male

DRUGS (5)
  1. ENBREL [Suspect]
     Indication: RHEUMATOID ARTHRITIS
     Route: 058
     Dates: start: 20040201, end: 20040601
  2. ENBREL [Suspect]
     Route: 058
     Dates: start: 20050701
  3. ARAVA [Concomitant]
  4. PARACETAMOL [Concomitant]
  5. PREDNISONE [Concomitant]

REACTIONS (2)
  - ARTERIAL HAEMORRHAGE [None]
  - MYOCARDIAL INFARCTION [None]
